FAERS Safety Report 5373976-6 (Version None)
Quarter: 2007Q2

REPORT INFORMATION
  Report Type: 
  Country: None (occurrence: None)
  Receive Date: 20070627
  Receipt Date: 20070612
  Transmission Date: 20071010
  Serious: Yes (Hospitalization)
  Sender: FDA-Public Use
  Company Number: APP200700188

PATIENT
  Age: 49 Year
  Sex: Male
  Weight: 100 kg

DRUGS (3)
  1. VANCOMYCIN HYDROCHLORIDE [Suspect]
     Indication: ARTHRITIS INFECTIVE
     Dosage: 3000 MG (1500 MG, 1 IN 12 HR), INTRAVENOUS
     Route: 042
     Dates: start: 20070530, end: 20070612
  2. VANCOMYCIN HYDROCHLORIDE [Suspect]
     Indication: STAPHYLOCOCCAL INFECTION
     Dosage: 3000 MG (1500 MG, 1 IN 12 HR), INTRAVENOUS
     Route: 042
     Dates: start: 20070530, end: 20070612
  3. VANCOMYCIN HYDROCHLORIDE [Suspect]

REACTIONS (3)
  - BLOOD CREATININE INCREASED [None]
  - DIZZINESS [None]
  - LOSS OF CONSCIOUSNESS [None]
